FAERS Safety Report 23777720 (Version 1)
Quarter: 2024Q2

REPORT INFORMATION
  Report Type: Spontaneous
  Country: US (occurrence: None)
  Receive Date: 20240423
  Receipt Date: 20240423
  Transmission Date: 20240716
  Serious: Yes (Disabling)
  Sender: FDA-Public Use
  Company Number: None

PATIENT
  Age: 55 Year
  Sex: Female
  Weight: 49.5 kg

DRUGS (21)
  1. EMGALITY [Suspect]
     Active Substance: GALCANEZUMAB-GNLM
     Indication: Migraine
     Dosage: OTHER FREQUENCY : MONTHLY;?
     Route: 030
  2. QULIPTA [Suspect]
     Active Substance: ATOGEPANT
  3. BOTOX [Concomitant]
     Active Substance: ONABOTULINUMTOXINA
  4. ESTRADIOL [Concomitant]
     Active Substance: ESTRADIOL
  5. ESTRATEST [Concomitant]
     Active Substance: ESTROGENS, ESTERIFIED\METHYLTESTOSTERONE
  6. PROPRANOLOL [Concomitant]
  7. BUTALBITAL [Concomitant]
  8. TIZANIDINE [Concomitant]
  9. TYLENOL WITH CODEINE [Suspect]
     Active Substance: ACETAMINOPHEN\CODEINE PHOSPHATE
  10. WELLBUTRIN [Concomitant]
  11. COENZYME Q10 [Concomitant]
     Active Substance: DIETARY SUPPLEMENT\UBIDECARENONE
  12. MAGNESIUM [Concomitant]
     Active Substance: MAGNESIUM
  13. b12 [Concomitant]
  14. FISH OIL [Concomitant]
  15. VITAMIN D NOS [Concomitant]
     Active Substance: VITAMIN D NOS
  16. GINGER [Concomitant]
     Active Substance: GINGER
  17. multi vitamin [Concomitant]
  18. IRON [Concomitant]
  19. ZINC [Concomitant]
     Active Substance: PYRITHIONE ZINC\ZINC\ZINC CHLORIDE
  20. CHROMIUM [Concomitant]
     Active Substance: CHROMIC CHLORIDE\CHROMIUM
  21. CALCIUM [Concomitant]

REACTIONS (23)
  - Pain [None]
  - Depressed mood [None]
  - Affective disorder [None]
  - Crying [None]
  - Nausea [None]
  - Fatigue [None]
  - Fatigue [None]
  - Arthralgia [None]
  - Muscular weakness [None]
  - Insomnia [None]
  - Neck pain [None]
  - Constipation [None]
  - Dyspepsia [None]
  - Dyspepsia [None]
  - Influenza like illness [None]
  - Pain in jaw [None]
  - Muscle spasms [None]
  - Spinal pain [None]
  - Feeling cold [None]
  - Weight increased [None]
  - Abdominal distension [None]
  - Libido decreased [None]
  - Drug ineffective [None]

NARRATIVE: CASE EVENT DATE: 20240124
